FAERS Safety Report 17065691 (Version 1)
Quarter: 2019Q4

REPORT INFORMATION
  Report Type: Spontaneous
  Country: FR (occurrence: FR)
  Receive Date: 20191122
  Receipt Date: 20191122
  Transmission Date: 20200122
  Serious: Yes (Other)
  Sender: FDA-Public Use
  Company Number: FR-US-PROVELL PHARMACEUTICALS LLC-9080040

PATIENT
  Age: 49 Year
  Sex: Female
  Weight: 83 kg

DRUGS (9)
  1. LEVOTHYROX NF [Suspect]
     Active Substance: LEVOTHYROXINE SODIUM
     Indication: GOITRE
     Dates: start: 2017, end: 2017
  2. LEVOTHYROX NF [Suspect]
     Active Substance: LEVOTHYROXINE SODIUM
     Dates: start: 2017, end: 2017
  3. LEVOTHYROX NF [Suspect]
     Active Substance: LEVOTHYROXINE SODIUM
     Dates: start: 2017, end: 201710
  4. IRBESARTAN. [Concomitant]
     Active Substance: IRBESARTAN
     Indication: HYPERTENSION
     Dosage: 300 (UNPSECIFIED UNITS)
  5. TARDYFERON [Concomitant]
     Active Substance: FERROUS SULFATE
     Indication: BLOOD IRON ABNORMAL
  6. LEVOTHYROX NF [Suspect]
     Active Substance: LEVOTHYROXINE SODIUM
     Dates: start: 2017, end: 2017
  7. LEVOTHYROX NF [Suspect]
     Active Substance: LEVOTHYROXINE SODIUM
     Indication: POST PROCEDURAL HYPOTHYROIDISM
     Dates: start: 20170610, end: 2017
  8. VITAMIN D                          /00107901/ [Concomitant]
     Active Substance: ERGOCALCIFEROL
     Indication: PRODUCT USED FOR UNKNOWN INDICATION
  9. ATORVASTATIN [Concomitant]
     Active Substance: ATORVASTATIN
     Indication: PRODUCT USED FOR UNKNOWN INDICATION

REACTIONS (26)
  - Sleep disorder [Unknown]
  - Vertigo [Unknown]
  - Phlebitis [Unknown]
  - Impaired work ability [Not Recovered/Not Resolved]
  - Thyroxine free increased [Unknown]
  - Blood thyroid stimulating hormone decreased [Recovered/Resolved]
  - Thyroid function test abnormal [Unknown]
  - C-reactive protein increased [Not Recovered/Not Resolved]
  - Weight loss poor [Unknown]
  - Overdose [Unknown]
  - Anxiety [Unknown]
  - Suffocation feeling [Unknown]
  - Tenosynovitis [Unknown]
  - Insomnia [Unknown]
  - Pain in extremity [Not Recovered/Not Resolved]
  - Oedema peripheral [Unknown]
  - Complex regional pain syndrome [Unknown]
  - Fatigue [Unknown]
  - Asthenia [Unknown]
  - Musculoskeletal discomfort [Unknown]
  - Haemoglobin decreased [Not Recovered/Not Resolved]
  - Red blood cell sedimentation rate increased [Unknown]
  - Laryngeal stenosis [Unknown]
  - Drug intolerance [Unknown]
  - Throat irritation [Unknown]
  - Palpitations [Unknown]

NARRATIVE: CASE EVENT DATE: 2017
